FAERS Safety Report 10366248 (Version 1)
Quarter: 2014Q1

REPORT INFORMATION
  Report Type: Spontaneous
  Country: US (occurrence: None)
  Receive Date: 20140306
  Receipt Date: 20140306
  Transmission Date: 20141002
  Serious: Yes (Hospitalization)
  Sender: FDA-Public Use
  Company Number: 163-21880-13022555

PATIENT
  Age: 56 Year
  Sex: Male

DRUGS (10)
  1. REVLIMID [Suspect]
     Indication: PLASMA CELL MYELOMA
  2. ASA (ACETYLSALICYLIC ACID) [Concomitant]
  3. AMLODIPINE BESYLATE (AMLODIPINE BESILATE) [Concomitant]
  4. HYDRALAZINE HCL (HYDRALAZINE HYDROCHLORIDE) [Concomitant]
  5. METOPROLOL SUCCINATE (METOPROLOL SUCCINATE) [Concomitant]
  6. OMEPRAZOLE (OMEPRAZOLE) [Concomitant]
  7. PERCOCET (OXYCOCET) [Concomitant]
  8. PRAVASTATIN SODIUM (PRAVASTATIN SODIUM) [Concomitant]
  9. SUPER B COMPLEX (B-COMPLEX ^KRKA^) [Concomitant]
  10. VITRON-C (VITRON-C) [Concomitant]

REACTIONS (2)
  - Blood potassium decreased [None]
  - Muscle spasms [None]
